FAERS Safety Report 14662744 (Version 1)
Quarter: 2018Q1

REPORT INFORMATION
  Report Type: Spontaneous
  Country: NL (occurrence: NL)
  Receive Date: 20180321
  Receipt Date: 20180321
  Transmission Date: 20180509
  Serious: Yes (Hospitalization, Other)
  Sender: FDA-Public Use
  Company Number: NL-ACCORD-064504

PATIENT
  Age: 36 Year
  Sex: Female
  Weight: 48 kg

DRUGS (2)
  1. THYRAX [Concomitant]
     Active Substance: LEVOTHYROXINE
     Indication: CONGENITAL HYPOTHYROIDISM
  2. CISPLATIN. [Suspect]
     Active Substance: CISPLATIN
     Indication: NASOPHARYNGEAL CANCER

REACTIONS (4)
  - Pancytopenia [Recovering/Resolving]
  - Acute kidney injury [Recovering/Resolving]
  - Colitis [Recovering/Resolving]
  - Mucosal inflammation [Recovering/Resolving]
